FAERS Safety Report 25142562 (Version 1)
Quarter: 2025Q1

REPORT INFORMATION
  Report Type: Report from Study
  Country: US (occurrence: US)
  Receive Date: 20250331
  Receipt Date: 20250331
  Transmission Date: 20250409
  Serious: Yes (Hospitalization, Other)
  Sender: GILEAD
  Company Number: US-GILEAD-2025-0708950

PATIENT
  Age: 68 Year
  Sex: Female

DRUGS (1)
  1. AZTREONAM LYSINE [Suspect]
     Active Substance: AZTREONAM LYSINE
     Indication: Cystic fibrosis
     Dosage: 75 MG, TID (75 MG INHALE 1 VIAL VIA ALTERA NEBULIZER THREE TIMES DAILY EVERY OTHER MONTH )
     Route: 055

REACTIONS (6)
  - Sepsis [Unknown]
  - Pneumonia [Unknown]
  - Influenza [Unknown]
  - Lower limb fracture [Unknown]
  - Upper limb fracture [Unknown]
  - Fall [Recovered/Resolved]
